FAERS Safety Report 11492570 (Version 1)
Quarter: 2015Q3

REPORT INFORMATION
  Report Type: Spontaneous
  Country: US (occurrence: None)
  Receive Date: 20150910
  Receipt Date: 20150910
  Transmission Date: 20151125
  Serious: Yes (Disabling, Other)
  Sender: FDA-Public Use
  Company Number: None

PATIENT
  Age: 73 Year
  Sex: Female
  Weight: 53.07 kg

DRUGS (16)
  1. VITAMINS + SILVER CENTRUM [Concomitant]
  2. RESTASIS [Concomitant]
     Active Substance: CYCLOSPORINE
  3. POTASSIUM [Concomitant]
     Active Substance: POTASSIUM
  4. VITAMIN D [Concomitant]
     Active Substance: CHOLECALCIFEROL
  5. CAL-MAG-ZINC [Concomitant]
  6. VITAMIN B COMPLEX [Concomitant]
     Active Substance: CYANOCOBALAMIN\DEXPANTHENOL\NIACINAMIDE\PYRIDOXINE HYDROCHLORIDE\RIBOFLAVIN 5^-PHOSPHATE SODIUM\THIAMINE HYDROCHLORIDE\VITAMIN B COMPLEX
  7. MELATONIN [Concomitant]
     Active Substance: MELATONIN
  8. SYNTHROID [Concomitant]
     Active Substance: LEVOTHYROXINE SODIUM
  9. TENS UNIT [Concomitant]
  10. FOLIC ACID. [Concomitant]
     Active Substance: FOLIC ACID
  11. PREMARIN [Concomitant]
     Active Substance: ESTROGENS, CONJUGATED
  12. TRAZODONE HYDROCHLORIDE. [Suspect]
     Active Substance: TRAZODONE HYDROCHLORIDE
     Indication: SLEEP DISORDER
     Dosage: 1/2 TO 3 TABS NIGHTLY FOR SLEEP
     Route: 048
     Dates: start: 20150705, end: 20150722
  13. VITAMIN C [Concomitant]
     Active Substance: ASCORBIC ACID
  14. ASPRIN [Concomitant]
     Active Substance: ASPIRIN
  15. DULCOLAX [Concomitant]
     Active Substance: BISACODYL OR DOCUSATE SODIUM
  16. BENADRYL [Concomitant]
     Active Substance: DIPHENHYDRAMINE HYDROCHLORIDE

REACTIONS (15)
  - Nasal congestion [None]
  - Pruritus [None]
  - Somnolence [None]
  - Dizziness [None]
  - Dyspnoea [None]
  - Nausea [None]
  - Fatigue [None]
  - Agitation [None]
  - Dry mouth [None]
  - Eye pain [None]
  - Restlessness [None]
  - Diarrhoea [None]
  - Myalgia [None]
  - Tremor [None]
  - Muscle twitching [None]

NARRATIVE: CASE EVENT DATE: 20150705
